FAERS Safety Report 13538864 (Version 1)
Quarter: 2017Q2

REPORT INFORMATION
  Report Type: Spontaneous
  Country: US (occurrence: US)
  Receive Date: 20170511
  Receipt Date: 20170511
  Transmission Date: 20170830
  Serious: Yes (Hospitalization)
  Sender: FDA-Public Use
  Company Number: None

PATIENT
  Age: 6 Year
  Sex: Male
  Weight: 26 kg

DRUGS (3)
  1. CLONIDINE. [Concomitant]
     Active Substance: CLONIDINE
  2. QUILLIVANT XR [Suspect]
     Active Substance: METHYLPHENIDATE HYDROCHLORIDE
     Indication: ATTENTION DEFICIT/HYPERACTIVITY DISORDER
     Route: 048
     Dates: start: 20161222, end: 20170509
  3. ALBUTEROL. [Concomitant]
     Active Substance: ALBUTEROL

REACTIONS (6)
  - Agitation [None]
  - Gait disturbance [None]
  - Hallucination [None]
  - Ataxia [None]
  - Formication [None]
  - Fine motor skill dysfunction [None]

NARRATIVE: CASE EVENT DATE: 20170509
